FAERS Safety Report 13144090 (Version 3)
Quarter: 2017Q1

REPORT INFORMATION
  Report Type: Spontaneous
  Country: JP (occurrence: JP)
  Receive Date: 20170124
  Receipt Date: 20170309
  Transmission Date: 20170428
  Serious: Yes (Hospitalization, Other)
  Sender: FDA-Public Use
  Company Number: JP-OTSUKA-2016_027282

PATIENT
  Age: 49 Year
  Sex: Female

DRUGS (4)
  1. SAMSCA 30 MG [Suspect]
     Active Substance: TOLVAPTAN
     Dosage: 60 MG, QD
     Route: 048
     Dates: start: 20161110, end: 20161111
  2. SAMSCA 30 MG [Suspect]
     Active Substance: TOLVAPTAN
     Dosage: 45 MG, QD, MORNING
     Route: 048
     Dates: start: 20161112, end: 20161112
  3. OLMETEC [Concomitant]
     Active Substance: OLMESARTAN MEDOXOMIL
     Indication: PRODUCT USED FOR UNKNOWN INDICATION
     Dosage: 30 MG, QD
     Route: 048
     Dates: start: 20160620
  4. SAMSCA 30 MG [Suspect]
     Active Substance: TOLVAPTAN
     Indication: CONGENITAL CYSTIC KIDNEY DISEASE
     Dosage: 30 MG, QD, MORNING
     Route: 048
     Dates: start: 20161113, end: 20161114

REACTIONS (6)
  - Dehydration [Recovered/Resolved]
  - Infected cyst [Recovered/Resolved]
  - Blood pressure decreased [Unknown]
  - Shock [Recovered/Resolved]
  - Polyuria [Recovered/Resolved]
  - Renal cyst haemorrhage [Recovered/Resolved]

NARRATIVE: CASE EVENT DATE: 20161110
